FAERS Safety Report 20859036 (Version 2)
Quarter: 2022Q2

REPORT INFORMATION
  Report Type: Report from Study
  Country: ES (occurrence: ES)
  Receive Date: 20220523
  Receipt Date: 20220608
  Transmission Date: 20220721
  Serious: Yes (Disabling, Other)
  Sender: FDA-Public Use
  Company Number: ES-AUROBINDO-AUR-APL-2022-018286

PATIENT
  Age: 55 Year
  Sex: Male

DRUGS (4)
  1. BUPIVACAINE [Suspect]
     Active Substance: BUPIVACAINE
     Indication: Lens extraction
     Dosage: (ROUTE OF ADMIN: PERIBULBAR TOTAL DOSE (LIDO+BUPI): 4ML )
     Route: 047
  2. BUPIVACAINE [Suspect]
     Active Substance: BUPIVACAINE
     Indication: Nerve block
  3. LIDOCAINE [Suspect]
     Active Substance: LIDOCAINE
     Indication: Lens extraction
     Dosage: (ROUTE OF ADMIN: PERIBULBAR TOTAL DOSE (LIDO+BUPI): 4ML)
     Route: 047
  4. LIDOCAINE [Suspect]
     Active Substance: LIDOCAINE
     Indication: Nerve block

REACTIONS (1)
  - Acute macular neuroretinopathy [Recovered/Resolved with Sequelae]
